FAERS Safety Report 10307153 (Version 3)
Quarter: 2020Q1

REPORT INFORMATION
  Report Type: Spontaneous
  Country: US (occurrence: US)
  Receive Date: 20140716
  Receipt Date: 20200106
  Transmission Date: 20200409
  Serious: Yes (Death)
  Sender: FDA-Public Use
  Company Number: US-UCBSA-2014005086

PATIENT
  Age: 50 Year
  Sex: Female
  Weight: 127.4 kg

DRUGS (5)
  1. CIMZIA [Suspect]
     Active Substance: CERTOLIZUMAB PEGOL
     Indication: RHEUMATOID ARTHRITIS
     Dosage: 400 MG, EV 4 WEEKS
     Dates: start: 2008, end: 20140624
  2. FOLIC ACID. [Concomitant]
     Active Substance: FOLIC ACID
  3. HYDROCODONE [Concomitant]
     Active Substance: HYDROCODONE
     Dosage: 10/500 MG 1 TABLET (QID), AS NEEDED (PRN)
     Route: 048
  4. ZOFRAN [Concomitant]
     Active Substance: ONDANSETRON HYDROCHLORIDE
     Dosage: 8 MG, WEEKLY (QW) (BEFORE METHOTREXATE INJECTION AT WEEK)
     Route: 048
  5. METHOTREXATE. [Concomitant]
     Active Substance: METHOTREXATE
     Indication: RHEUMATOID ARTHRITIS
     Dosage: 0.6 MG, WEEKLY (QW)

REACTIONS (1)
  - Acute monocytic leukaemia [Fatal]

NARRATIVE: CASE EVENT DATE: 20131002
